FAERS Safety Report 5884412-5 (Version None)
Quarter: 2008Q3

REPORT INFORMATION
  Report Type: 
  Country: None (occurrence: None)
  Receive Date: 20080915
  Receipt Date: 20080909
  Transmission Date: 20090109
  Serious: Yes (Other)
  Sender: FDA-Public Use
  Company Number: DE-MERCK-0809DEU00049

PATIENT
  Sex: Female

DRUGS (7)
  1. VYTORIN [Suspect]
     Route: 048
     Dates: start: 20080909
  2. ASPIRIN [Suspect]
     Route: 048
     Dates: start: 20080909
  3. DICLOFENAC [Suspect]
     Route: 048
     Dates: start: 20080909
  4. KETOPROFEN [Suspect]
     Route: 048
     Dates: start: 20080909
  5. METOPROLOL [Suspect]
     Route: 048
     Dates: start: 20080909
  6. OPIPRAMOL HYDROCHLORIDE [Suspect]
     Route: 048
     Dates: start: 20080909
  7. ZOCOR [Suspect]
     Route: 048
     Dates: start: 20080909

REACTIONS (3)
  - GENERAL SYMPTOM [None]
  - INTENTIONAL OVERDOSE [None]
  - SUICIDE ATTEMPT [None]
